FAERS Safety Report 8491418-9 (Version None)
Quarter: 2012Q3

REPORT INFORMATION
  Report Type: 
  Country: None (occurrence: None)
  Receive Date: 20120706
  Receipt Date: 20120627
  Transmission Date: 20120928
  Serious: Yes (Other)
  Sender: FDA-Public Use
  Company Number: JP-VERTEX PHARMACEUTICALS INC.-AE-2012-003194

PATIENT
  Age: 54 Year
  Sex: Female

DRUGS (16)
  1. RIBAVIRIN [Concomitant]
     Route: 048
     Dates: start: 20120223, end: 20120320
  2. RIBAVIRIN [Concomitant]
     Route: 048
     Dates: start: 20120321, end: 20120405
  3. RIBAVIRIN [Concomitant]
     Route: 048
     Dates: start: 20120406, end: 20120410
  4. TELAVIC (TELAPREVIR) [Suspect]
     Indication: HEPATITIS C
     Route: 048
     Dates: start: 20120111, end: 20120227
  5. TELAVIC (TELAPREVIR) [Suspect]
     Route: 048
     Dates: start: 20120228, end: 20120327
  6. PEGINTERFERON ALFA-2B [Concomitant]
     Indication: HEPATITIS C
     Route: 058
     Dates: start: 20120111, end: 20120627
  7. MUCOSTA [Concomitant]
     Route: 048
     Dates: start: 20120111, end: 20120112
  8. RIBAVIRIN [Concomitant]
     Route: 048
     Dates: start: 20120208, end: 20120214
  9. RIBAVIRIN [Concomitant]
     Route: 048
     Dates: start: 20120418, end: 20120627
  10. VOLTAREN [Concomitant]
     Route: 048
     Dates: start: 20120111, end: 20120112
  11. HIRUDOID [Concomitant]
     Route: 061
     Dates: start: 20120111, end: 20120405
  12. TELAVIC (TELAPREVIR) [Suspect]
     Route: 048
     Dates: start: 20120328
  13. RIBAVIRIN [Concomitant]
     Indication: HEPATITIS C
     Route: 048
     Dates: start: 20120111, end: 20120131
  14. RIBAVIRIN [Concomitant]
     Route: 048
     Dates: start: 20120201, end: 20120207
  15. RIBAVIRIN [Concomitant]
     Route: 048
     Dates: start: 20120215, end: 20120222
  16. RIBAVIRIN [Concomitant]
     Route: 048
     Dates: start: 20120411, end: 20120417

REACTIONS (2)
  - HAEMOGLOBIN DECREASED [None]
  - WHITE BLOOD CELL COUNT DECREASED [None]
